FAERS Safety Report 10554507 (Version 1)
Quarter: 2014Q4

REPORT INFORMATION
  Report Type: Spontaneous
  Country: US (occurrence: US)
  Receive Date: 20141030
  Receipt Date: 20141030
  Transmission Date: 20150529
  Serious: No
  Sender: FDA-Public Use
  Company Number: US-PFIZER INC-2014296893

PATIENT
  Age: 56 Year
  Sex: Female

DRUGS (5)
  1. ISOPTIN - SLOW RELEASE [Concomitant]
     Dosage: 180 MG, UNK
     Route: 048
     Dates: start: 20110816
  2. GLUCOTROL [Concomitant]
     Active Substance: GLIPIZIDE
     Dosage: 5 MG, UNK
     Route: 048
     Dates: start: 20110816
  3. ORTHO-EST [Concomitant]
     Active Substance: ESTROPIPATE
     Dosage: 1.25 MG, UNK
     Route: 048
     Dates: start: 20110816
  4. SUTENT [Suspect]
     Active Substance: SUNITINIB MALATE
     Indication: METASTATIC RENAL CELL CARCINOMA
     Dosage: 12.5 MG ONCE DAILY CYCLIC
  5. MAXZIDE [Concomitant]
     Active Substance: HYDROCHLOROTHIAZIDE\TRIAMTERENE
     Dosage: 50 MG, UNK
     Route: 048

REACTIONS (2)
  - Diarrhoea [Unknown]
  - Fatigue [Unknown]
